FAERS Safety Report 4901473-8 (Version None)
Quarter: 2006Q1

REPORT INFORMATION
  Report Type: 
  Country: None (occurrence: None)
  Receive Date: 20060206
  Receipt Date: 20060124
  Transmission Date: 20060701
  Serious: Yes (Disabling)
  Sender: FDA-Public Use
  Company Number: PHHO2006GB01420

PATIENT
  Age: 61 Year
  Sex: Female

DRUGS (4)
  1. ZOLEDRONATE [Suspect]
     Indication: METASTASES TO BONE
     Dosage: 4 MG, UNK
     Route: 042
     Dates: start: 20031212, end: 20051209
  2. CHEMOTHERAPEUTICS,OTHER [Concomitant]
     Indication: BREAST CANCER
  3. VITAMIN D [Concomitant]
     Dosage: 400-500 IU, QD
     Route: 048
  4. CALCIUM GLUCONATE [Concomitant]
     Dosage: 500 MG, QD
     Route: 048

REACTIONS (1)
  - OSTEONECROSIS [None]
